FAERS Safety Report 23916335 (Version 1)
Quarter: 2024Q2

REPORT INFORMATION
  Report Type: Spontaneous
  Country: FR (occurrence: FR)
  Receive Date: 20240529
  Receipt Date: 20240529
  Transmission Date: 20240716
  Serious: Yes (Hospitalization)
  Sender: FDA-Public Use
  Company Number: None

PATIENT
  Age: 41 Year
  Sex: Male
  Weight: 64 kg

DRUGS (16)
  1. AZITHROMYCIN [Suspect]
     Active Substance: AZITHROMYCIN
     Indication: Antibiotic prophylaxis
     Dosage: 250 MG, ALTERNATE DAY (3 TIMES PER WEEK)
     Route: 048
  2. PROGRAF [Suspect]
     Active Substance: TACROLIMUS
     Indication: Prophylaxis against transplant rejection
     Dosage: 3.5 MG, 1X/DAY (2 MG MORNING ; 1,5 MG EVENING)
     Route: 048
     Dates: start: 2011
  3. CERTICAN [Suspect]
     Active Substance: EVEROLIMUS
     Indication: Prophylaxis against transplant rejection
     Dosage: 2.5 MG, 2X/DAY FREQ:12 H;
     Route: 048
     Dates: start: 2011
  4. BACTRIM [Suspect]
     Active Substance: SULFAMETHOXAZOLE\TRIMETHOPRIM
     Indication: Antifungal prophylaxis
     Dosage: 1 DF, ALTERNATE DAY 3 TIMES PER WEEK
     Route: 048
  5. ESOMEPRAZOLE MAGNESIUM [Suspect]
     Active Substance: ESOMEPRAZOLE MAGNESIUM
     Indication: Hiatus hernia
     Dosage: 40 MG, 1X/DAY
     Route: 048
  6. CALTRATE WITH VITAMIN D [Concomitant]
     Active Substance: CALCIUM CARBONATE\CHOLECALCIFEROL
     Dosage: UNK
  7. NASONEX [Concomitant]
     Active Substance: MOMETASONE FUROATE
     Dosage: UNK
  8. PANCRELIPASE [Concomitant]
     Active Substance: PANCRELIPASE
     Dosage: UNK
  9. CODEINE [Concomitant]
     Active Substance: CODEINE
     Dosage: UNK
  10. .ALPHA.-TOCOPHEROL ACETATE, D- [Concomitant]
     Active Substance: .ALPHA.-TOCOPHEROL ACETATE, D-
     Dosage: UNK
  11. URAPIDIL [Concomitant]
     Active Substance: URAPIDIL
     Dosage: UNK
  12. ACETAMINOPHEN [Concomitant]
     Active Substance: ACETAMINOPHEN
     Dosage: UNK
  13. ELIQUIS [Concomitant]
     Active Substance: APIXABAN
     Dosage: UNK
  14. POLYETHYLENE GLYCOLS [Concomitant]
     Active Substance: POLYETHYLENE GLYCOLS
     Dosage: UNK
  15. CHOLECALCIFEROL [Concomitant]
     Active Substance: CHOLECALCIFEROL
     Dosage: UNK
  16. URSODIOL [Concomitant]
     Active Substance: URSODIOL
     Dosage: UNK

REACTIONS (3)
  - Agranulocytosis [Not Recovered/Not Resolved]
  - Off label use [Not Recovered/Not Resolved]
  - Off label use [Not Recovered/Not Resolved]

NARRATIVE: CASE EVENT DATE: 20240403
